FAERS Safety Report 7052299-3 (Version None)
Quarter: 2010Q4

REPORT INFORMATION
  Report Type: 
  Country: None (occurrence: None)
  Receive Date: 20101019
  Receipt Date: 20101011
  Transmission Date: 20110411
  Serious: Yes (Hospitalization, Other)
  Sender: FDA-Public Use
  Company Number: US-ELI_LILLY_AND_COMPANY-US200908003801

PATIENT
  Sex: Female
  Weight: 68.027 kg

DRUGS (15)
  1. BYETTA [Suspect]
     Dosage: UNK, UNKNOWN
     Route: 065
     Dates: start: 20051201, end: 20080508
  2. VYTORIN [Concomitant]
     Dosage: UNK, UNKNOWN
  3. LESCOL [Concomitant]
     Dosage: UNK, UNKNOWN
  4. NEXIUM [Concomitant]
     Dosage: UNK, UNKNOWN
  5. LASIX [Concomitant]
     Dosage: UNK, UNKNOWN
  6. ESTRACE [Concomitant]
     Dosage: UNK, UNKNOWN
  7. TYLENOL W/ CODEINE NO. 3 [Concomitant]
     Dosage: UNK, UNKNOWN
  8. METFORMIN HCL [Concomitant]
     Dosage: 500 MG, 3/D
  9. FENTANYL                           /00174601/ [Concomitant]
     Dosage: 25 UG, OTHER
  10. SPIRONOLACTONE [Concomitant]
     Dosage: 25 MG, 2/D
  11. NORVASC [Concomitant]
     Dosage: UNK, UNKNOWN
  12. VIOKASE 16 [Concomitant]
     Dosage: UNK, DAILY (1/D)
  13. NIASPAN [Concomitant]
     Dosage: 500 MG, EACH EVENING
  14. CRESTOR [Concomitant]
     Dosage: 8 MG, WEEKLY (1/W)
  15. COREG [Concomitant]
     Dosage: 6.25 MG, 2/D

REACTIONS (5)
  - ARTHRITIS [None]
  - OSTEOPENIA [None]
  - PANCREATITIS [None]
  - PANCREATITIS CHRONIC [None]
  - SPINAL COMPRESSION FRACTURE [None]
